FAERS Safety Report 14033579 (Version 2)
Quarter: 2017Q4

REPORT INFORMATION
  Report Type: Spontaneous
  Country: FR (occurrence: FR)
  Receive Date: 20171003
  Receipt Date: 20171204
  Transmission Date: 20180321
  Serious: Yes (Other)
  Sender: FDA-Public Use
  Company Number: FR-MERCK KGAA-2028574

PATIENT
  Age: 67 Year
  Sex: Female

DRUGS (13)
  1. STILNOX [Concomitant]
     Active Substance: ZOLPIDEM TARTRATE
  2. LEXOMIL [Concomitant]
     Active Substance: BROMAZEPAM
  3. KARDEGIC [Concomitant]
     Active Substance: ASPIRIN DL-LYSINE
  4. LASILIX SPECIAL [Concomitant]
     Active Substance: FUROSEMIDE
  5. PROCORALAN [Concomitant]
     Active Substance: IVABRADINE
  6. NOVOTHYROX [Suspect]
     Active Substance: LEVOTHYROXINE SODIUM
     Indication: HYPOTHYROIDISM
     Dates: start: 201703
  7. DEPAKINE [Concomitant]
     Active Substance: VALPROATE SODIUM
  8. ISOPTINE [Concomitant]
     Active Substance: VERAPAMIL HYDROCHLORIDE
  9. NOVOTHYROX [Suspect]
     Active Substance: LEVOTHYROXINE SODIUM
  10. SEROPRAM (CITALOPRAM HYDROBROMIDE) [Concomitant]
     Active Substance: CITALOPRAM HYDROBROMIDE
  11. INEGY [Concomitant]
     Active Substance: EZETIMIBE\SIMVASTATIN
  12. ACTONEL [Concomitant]
     Active Substance: RISEDRONATE SODIUM
  13. SINGULAIR [Concomitant]
     Active Substance: MONTELUKAST SODIUM

REACTIONS (11)
  - Headache [None]
  - Pain in extremity [None]
  - Gait inability [None]
  - Blood thyroid stimulating hormone increased [None]
  - Fatigue [None]
  - Diarrhoea [None]
  - Alopecia [None]
  - Muscle tightness [None]
  - Myalgia [None]
  - Grip strength decreased [None]
  - Weight increased [None]

NARRATIVE: CASE EVENT DATE: 2017
